FAERS Safety Report 6993634-1 (Version None)
Quarter: 2010Q3

REPORT INFORMATION
  Report Type: 
  Country: None (occurrence: None)
  Receive Date: 20100917
  Receipt Date: 20080220
  Transmission Date: 20110219
  Serious: Yes (Hospitalization, Other)
  Sender: FDA-Public Use
  Company Number: US-ASTRAZENECA-2007UW26652

PATIENT
  Age: 18219 Day
  Sex: Male
  Weight: 82.2 kg

DRUGS (26)
  1. SEROQUEL [Suspect]
     Indication: SLEEP DISORDER
     Route: 048
     Dates: start: 20030101, end: 20040101
  2. SEROQUEL [Suspect]
     Indication: DEPRESSION
     Route: 048
     Dates: start: 20030101, end: 20040101
  3. SEROQUEL [Suspect]
     Dosage: STRENGTH- 100MG, 200MG, 300MG
     Route: 048
     Dates: start: 20040614
  4. SEROQUEL [Suspect]
     Dosage: STRENGTH- 100MG, 200MG, 300MG
     Route: 048
     Dates: start: 20040614
  5. SEROQUEL [Suspect]
     Route: 048
     Dates: start: 20050305, end: 20051114
  6. SEROQUEL [Suspect]
     Route: 048
     Dates: start: 20050305, end: 20051114
  7. SEROQUEL [Suspect]
     Route: 048
     Dates: start: 20051216, end: 20060818
  8. SEROQUEL [Suspect]
     Route: 048
     Dates: start: 20051216, end: 20060818
  9. SEROQUEL [Suspect]
     Route: 048
     Dates: start: 20070509
  10. SEROQUEL [Suspect]
     Route: 048
     Dates: start: 20070509
  11. ABILIFY [Concomitant]
     Indication: SCHIZOPHRENIA
     Route: 048
     Dates: start: 20040103
  12. ABILIFY [Concomitant]
     Route: 048
     Dates: start: 20050831
  13. RISPERDAL [Concomitant]
     Route: 048
     Dates: start: 19990101
  14. THORAZINE [Concomitant]
     Dates: start: 20051129
  15. ZYPREXA [Concomitant]
     Indication: SCHIZOPHRENIA
     Route: 048
     Dates: start: 20010101
  16. ZYPREXA [Concomitant]
     Dosage: STRENGTH- 10 MG, 20 MG DOSE- 20 MG DAILY
     Route: 048
     Dates: start: 20031003
  17. EFFEXOR XR [Concomitant]
     Indication: ANXIETY
     Route: 048
     Dates: start: 20031205
  18. EFFEXOR XR [Concomitant]
     Indication: DEPRESSION
     Route: 048
     Dates: start: 20031205
  19. EFFEXOR XR [Concomitant]
     Route: 048
     Dates: start: 20050601
  20. EFFEXOR XR [Concomitant]
     Route: 048
     Dates: start: 20050601
  21. LEVAQUIN [Concomitant]
     Indication: LEUKOCYTOSIS
     Dates: start: 20040226
  22. DOXYCYCLINE [Concomitant]
     Dates: start: 20031114
  23. GEMFIBROZIL [Concomitant]
     Dates: start: 20040302
  24. NORVASC [Concomitant]
     Dosage: STRENGTH- 5 MG, 10 MG
     Dates: start: 20040302
  25. TRICOR [Concomitant]
     Dosage: STRENGTH- 145 MG, 160 MG
     Dates: start: 20040505
  26. BIAXIN [Concomitant]
     Indication: SINUSITIS
     Dates: start: 20040226

REACTIONS (7)
  - BLOOD CHOLESTEROL INCREASED [None]
  - BLOOD TRIGLYCERIDES INCREASED [None]
  - DIABETES MELLITUS [None]
  - DIABETIC KETOACIDOSIS [None]
  - DIZZINESS [None]
  - PANCREATITIS [None]
  - POLLAKIURIA [None]
